FAERS Safety Report 11608392 (Version 2)
Quarter: 2016Q1

REPORT INFORMATION
  Report Type: Spontaneous
  Country: US (occurrence: None)
  Receive Date: 20151007
  Receipt Date: 20160104
  Transmission Date: 20160525
  Serious: Yes (Other)
  Sender: FDA-Public Use
  Company Number: US-MDT-ADR-2015-01916

PATIENT
  Age: 60 Year
  Sex: Female

DRUGS (2)
  1. COMPOUNDED BACLOFEN INTRATHECAL 10MCG/ML [Suspect]
     Active Substance: BACLOFEN
     Indication: PAIN
     Dosage: 4.53MCG/DAY
  2. HYDROMORPHONE INTRATHECAL 15MG/ML [Suspect]
     Active Substance: HYDROMORPHONE
     Indication: PAIN
     Dosage: 6.8MG/DAY

REACTIONS (7)
  - Pain [None]
  - Medical device site discomfort [None]
  - Nerve compression [None]
  - Unevaluable event [None]
  - Heart rate increased [None]
  - Medical device site bruise [None]
  - Twiddler^s syndrome [None]
